FAERS Safety Report 11471387 (Version 2)
Quarter: 2015Q3

REPORT INFORMATION
  Report Type: Spontaneous
  Country: US (occurrence: US)
  Receive Date: 20150903
  Receipt Date: 20150903
  Transmission Date: 20151125
  Serious: No
  Sender: FDA-Public Use
  Company Number: US-ELI_LILLY_AND_COMPANY-US201202003974

PATIENT
  Age: 45 Year
  Sex: Female

DRUGS (2)
  1. CYMBALTA [Suspect]
     Active Substance: DULOXETINE HYDROCHLORIDE
     Dosage: UNK, UNKNOWN
  2. PLAQUENIL [Concomitant]
     Active Substance: HYDROXYCHLOROQUINE SULFATE

REACTIONS (7)
  - Carpal tunnel syndrome [Unknown]
  - Memory impairment [Unknown]
  - Systemic lupus erythematosus [Unknown]
  - Knee operation [Unknown]
  - Fibromyalgia [Unknown]
  - Raynaud^s phenomenon [Unknown]
  - Pain [Unknown]
